FAERS Safety Report 4910634-3 (Version None)
Quarter: 2006Q1

REPORT INFORMATION
  Report Type: 
  Country: None (occurrence: None)
  Receive Date: 20060210
  Receipt Date: 20060210
  Transmission Date: 20060701
  Serious: Yes (Other)
  Sender: FDA-Public Use
  Company Number: None

PATIENT
  Age: 55 Year
  Sex: Male
  Weight: 97.6141 kg

DRUGS (1)
  1. TRAMADOL [Suspect]
     Indication: BACK PAIN
     Dosage: 50 MG 1 Q 4-6 HRS PRN
     Dates: start: 20060125

REACTIONS (4)
  - BURNING SENSATION [None]
  - INADEQUATE ANALGESIA [None]
  - PARAESTHESIA [None]
  - PHARMACEUTICAL PRODUCT COMPLAINT [None]
